FAERS Safety Report 5426752-X (Version None)
Quarter: 2007Q3

REPORT INFORMATION
  Report Type: 
  Country: None (occurrence: None)
  Receive Date: 20070731
  Receipt Date: 20070612
  Transmission Date: 20080115
  Serious: No
  Sender: FDA-Public Use
  Company Number: 2007PV032410

PATIENT
  Age: 63 Year
  Sex: Female
  Weight: 113.4 kg

DRUGS (8)
  1. EXENATIDE(EXENATIDE) PEN,DISPOSABLE [Suspect]
     Indication: TYPE 2 DIABETES MELLITUS
     Dosage: 10 UG, 2/D, 5 UG, 2/D 5UG, 2/D SUBCUTANEOUS
     Route: 058
     Dates: start: 20070212, end: 20070312
  2. EXENATIDE(EXENATIDE) PEN,DISPOSABLE [Suspect]
     Indication: TYPE 2 DIABETES MELLITUS
     Dosage: 10 UG, 2/D, 5 UG, 2/D 5UG, 2/D SUBCUTANEOUS
     Route: 058
     Dates: start: 20070401, end: 20070501
  3. EXENATIDE(EXENATIDE) PEN,DISPOSABLE [Suspect]
     Indication: TYPE 2 DIABETES MELLITUS
     Dosage: 10 UG, 2/D, 5 UG, 2/D 5UG, 2/D SUBCUTANEOUS
     Route: 058
     Dates: start: 20070312
  4. EXENATIDE(EXENATIDE) PEN,DISPOSABLE [Suspect]
     Indication: TYPE 2 DIABETES MELLITUS
     Dosage: 10 UG, 2/D, 5 UG, 2/D 5UG, 2/D SUBCUTANEOUS
     Route: 058
     Dates: start: 20070501
  5. AMARYL [Concomitant]
  6. ACTOS [Concomitant]
  7. EXENATIDE [Concomitant]
  8. EXENATIDE(EXENATIDE) PEN,DISPOSABLE [Suspect]
     Dates: start: 20070501

REACTIONS (6)
  - ANOREXIA [None]
  - BLOOD GLUCOSE INCREASED [None]
  - EAR INFECTION [None]
  - FATIGUE [None]
  - VISION BLURRED [None]
  - WEIGHT DECREASED [None]
